FAERS Safety Report 13677876 (Version 1)
Quarter: 2017Q2

REPORT INFORMATION
  Report Type: Spontaneous
  Country: DE (occurrence: DE)
  Receive Date: 20170622
  Receipt Date: 20170622
  Transmission Date: 20170830
  Serious: Yes (Other)
  Sender: FDA-Public Use
  Company Number: GXKR2017DE003253

PATIENT

DRUGS (10)
  1. CARVEDILOL. [Suspect]
     Active Substance: CARVEDILOL
     Indication: RENAL HYPERTENSION
     Dosage: 50 [MG/D ]/ REDUCED TO 25 MG/D IN WEEK 26 5/7
     Route: 048
     Dates: start: 20160701, end: 20170104
  2. AZATHIOPRINE. [Suspect]
     Active Substance: AZATHIOPRINE
     Indication: ANTI-NEUTROPHIL CYTOPLASMIC ANTIBODY POSITIVE VASCULITIS
     Dosage: 150 [MG/D ]/ 50-0-100 MG/D
     Route: 048
     Dates: start: 20160701, end: 20170104
  3. PREDNISOLON [Concomitant]
     Active Substance: PREDNISOLONE
     Indication: ANTI-NEUTROPHIL CYTOPLASMIC ANTIBODY POSITIVE VASCULITIS
     Dosage: 12 [MG/D ]/ DOSAGE INCREASE FROM 4 TO 12 MG/D
     Route: 048
     Dates: start: 20160701, end: 20170104
  4. ASPIRIN. [Concomitant]
     Active Substance: ASPIRIN
     Indication: PRODUCT USED FOR UNKNOWN INDICATION
     Dosage: 100 [MG/D ]
     Route: 048
     Dates: start: 20161229, end: 20170104
  5. TORASEMIDE [Suspect]
     Active Substance: TORSEMIDE
     Indication: OEDEMA
     Dosage: 5 [MG/D ]/ IF REQUIRED
     Route: 048
     Dates: start: 20160701, end: 20161128
  6. LOSARTAN. [Suspect]
     Active Substance: LOSARTAN
     Indication: RENAL HYPERTENSION
     Dosage: 25 [MG/D ] (GW 0 TO 25.5)
     Route: 048
  7. VITAMIN B12 [Concomitant]
     Active Substance: CYANOCOBALAMIN
     Indication: VITAMIN B12 DEFICIENCY
     Route: 030
     Dates: start: 20160701, end: 20161128
  8. CELESTAN [Concomitant]
     Active Substance: BETAMETHASONE
     Indication: MATERNAL THERAPY TO ENHANCE FOETAL LUNG MATURITY
     Dosage: UNK, GW 25.6 TO 26
     Route: 030
     Dates: start: 20161229, end: 20161230
  9. PANTOPRAZOL [Concomitant]
     Active Substance: PANTOPRAZOLE SODIUM
     Indication: PROPHYLAXIS AGAINST GASTROINTESTINAL ULCER
     Dosage: 20 [MG/D ]
     Route: 048
     Dates: start: 20160701, end: 20170104
  10. VIGANTOLETTEN [Concomitant]
     Active Substance: CHOLECALCIFEROL
     Indication: VITAMIN D DEFICIENCY
     Dosage: 1000 [IU/D ]
     Route: 048
     Dates: start: 20160701, end: 20170104

REACTIONS (1)
  - Oligohydramnios [Recovered/Resolved]
